FAERS Safety Report 18112861 (Version 1)
Quarter: 2020Q3

REPORT INFORMATION
  Report Type: Spontaneous
  Country: US (occurrence: US)
  Receive Date: 20200804
  Receipt Date: 20200804
  Transmission Date: 20201103
  Serious: Yes (Hospitalization, Disabling)
  Sender: FDA-Public Use
  Company Number: None

PATIENT
  Age: 40 Year
  Sex: Female
  Weight: 52.2 kg

DRUGS (3)
  1. HALOPERIDOL;(HALDOL) [Suspect]
     Active Substance: HALOPERIDOL
     Indication: MENTAL DISORDER
     Dosage: ?          QUANTITY:14 CAPSULE(S);?
     Route: 048
     Dates: start: 20200706, end: 20200711
  2. HALOPERIDOL 50 ML [Suspect]
     Active Substance: HALOPERIDOL
     Indication: MENTAL DISORDER
     Route: 030
  3. HYDROCORTISONE 2 1/2 PER CENT [Concomitant]

REACTIONS (8)
  - Musculoskeletal stiffness [None]
  - Feeding disorder [None]
  - Drooling [None]
  - Loss of personal independence in daily activities [None]
  - Gait inability [None]
  - Dysphagia [None]
  - Dysstasia [None]
  - Tremor [None]

NARRATIVE: CASE EVENT DATE: 20200706
